FAERS Safety Report 4455457-7 (Version None)
Quarter: 2004Q3

REPORT INFORMATION
  Report Type: 
  Country: None (occurrence: None)
  Receive Date: 20040917
  Receipt Date: 20040826
  Transmission Date: 20050211
  Serious: Yes (Death)
  Sender: FDA-Public Use
  Company Number: EWC040840419

PATIENT
  Age: 59 Year
  Sex: Male

DRUGS (1)
  1. XIGRIS [Suspect]

REACTIONS (13)
  - CARDIAC ARREST [None]
  - GASTRO-INTESTINAL FISTULA [None]
  - GENERAL PHYSICAL HEALTH DETERIORATION [None]
  - HAEMODYNAMIC INSTABILITY [None]
  - INFECTION [None]
  - INTESTINAL FUNCTIONAL DISORDER [None]
  - INTESTINAL PERFORATION [None]
  - MULTI-ORGAN FAILURE [None]
  - PHARMACEUTICAL PRODUCT COMPLAINT [None]
  - POST PROCEDURAL COMPLICATION [None]
  - POSTOPERATIVE RESPIRATORY DISTRESS [None]
  - RENAL FAILURE [None]
  - SEPSIS [None]
